FAERS Safety Report 14128722 (Version 1)
Quarter: 2017Q4

REPORT INFORMATION
  Report Type: Spontaneous
  Country: US (occurrence: None)
  Receive Date: 20171026
  Receipt Date: 20171026
  Transmission Date: 20180321
  Serious: No
  Sender: FDA-Public Use
  Company Number: None

PATIENT
  Age: 69 Year
  Sex: Female

DRUGS (1)
  1. KISQALI [Suspect]
     Active Substance: RIBOCICLIB

REACTIONS (5)
  - Sleep disorder [None]
  - Lacrimation increased [None]
  - Hot flush [None]
  - Fatigue [None]
  - Productive cough [None]

NARRATIVE: CASE EVENT DATE: 20171026
